FAERS Safety Report 20122904 (Version 3)
Quarter: 2024Q4

REPORT INFORMATION
  Report Type: Spontaneous
  Country: US (occurrence: US)
  Receive Date: 20211129
  Receipt Date: 20241105
  Transmission Date: 20250115
  Serious: No
  Sender: UCB
  Company Number: US-UCBSA-2020055196

PATIENT
  Sex: Female

DRUGS (3)
  1. VIMPAT [Suspect]
     Active Substance: LACOSAMIDE
     Indication: Seizure
     Dosage: 50MG 1 PO OR ARISING 2 AFTER BREAKFAST AND 3 AT, 3X/DAY (TID)
     Route: 048
  2. VIMPAT [Suspect]
     Active Substance: LACOSAMIDE
     Dosage: 50MG 2 TABLETS IN THE MORNING, 2 TABLETS AFTER BREAKFAST AND 3 TABLETS IN THE EVENING
     Route: 048
  3. VIMPAT [Suspect]
     Active Substance: LACOSAMIDE
     Dosage: 50MG 1 TABLETS IN THE MORNING, 2 TABLETS AFTER BREAKFAST AND 3 TABLETS IN THE EVENING
     Route: 048

REACTIONS (2)
  - Product prescribing error [Unknown]
  - Quality of life decreased [Not Recovered/Not Resolved]
